FAERS Safety Report 10705441 (Version 3)
Quarter: 2015Q3

REPORT INFORMATION
  Report Type: Spontaneous
  Country: US (occurrence: US)
  Receive Date: 20150112
  Receipt Date: 20150820
  Transmission Date: 20151125
  Serious: No
  Sender: FDA-Public Use
  Company Number: US-GLAXOSMITHKLINE-A1068559A

PATIENT
  Age: 93 Year
  Sex: Female

DRUGS (2)
  1. PROMACTA [Suspect]
     Active Substance: ELTROMBOPAG OLAMINE
     Indication: BLOOD DISORDER
     Dosage: 50 MG, UNK
     Dates: start: 20131029
  2. PROMACTA [Suspect]
     Active Substance: ELTROMBOPAG OLAMINE
     Indication: IMMUNE THROMBOCYTOPENIC PURPURA
     Dosage: 75 MG TABLETS
     Route: 065
     Dates: start: 20131029

REACTIONS (5)
  - Incorrect dosage administered [Unknown]
  - Urinary incontinence [Unknown]
  - Pruritus [Not Recovered/Not Resolved]
  - Faecal incontinence [Unknown]
  - Dizziness [Unknown]

NARRATIVE: CASE EVENT DATE: 201506
